FAERS Safety Report 7960998-1 (Version None)
Quarter: 2011Q4

REPORT INFORMATION
  Report Type: 
  Country: None (occurrence: None)
  Receive Date: 20111207
  Receipt Date: 20111205
  Transmission Date: 20120403
  Serious: No
  Sender: FDA-Public Use
  Company Number: US-PFIZER INC-2011270816

PATIENT
  Sex: Female
  Weight: 77 kg

DRUGS (6)
  1. CHANTIX [Suspect]
     Indication: SMOKING CESSATION THERAPY
     Dosage: 0.5 MG, 1X/DAY
     Route: 048
     Dates: start: 20110701, end: 20110101
  2. CHANTIX [Suspect]
     Indication: TOBACCO ABUSE
     Dosage: 1 MG, 2X/DAY
     Route: 048
     Dates: start: 20110101, end: 20110901
  3. PREVACID [Concomitant]
     Indication: GASTROOESOPHAGEAL REFLUX DISEASE
     Dosage: 30 MG, UNK
  4. ZOCOR [Concomitant]
     Indication: BLOOD CHOLESTEROL INCREASED
     Dosage: UNK
  5. PRAVACHOL [Concomitant]
     Indication: HYPERLIPIDAEMIA
     Dosage: 40 MG, UNK
  6. HYDROCHLOROTHIAZIDE [Concomitant]
     Indication: HYPERTENSION
     Dosage: 12.5 MG, UNK

REACTIONS (3)
  - HYPERSENSITIVITY [None]
  - NAUSEA [None]
  - MUSCLE SPASMS [None]
